FAERS Safety Report 24396562 (Version 1)
Quarter: 2024Q4

REPORT INFORMATION
  Report Type: Spontaneous
  Country: CN (occurrence: CN)
  Receive Date: 20241004
  Receipt Date: 20241004
  Transmission Date: 20250115
  Serious: Yes (Life-Threatening, Hospitalization, Other)
  Sender: BAYER
  Company Number: CN-BAYER-2024A141757

PATIENT
  Age: 29 Year
  Sex: Female
  Weight: 66 kg

DRUGS (1)
  1. ULTRAVIST [Suspect]
     Active Substance: IOPROMIDE
     Indication: Computerised tomogram
     Dosage: 50 ML, ONCE
     Route: 042
     Dates: start: 20240926, end: 20240926

REACTIONS (9)
  - Chest discomfort [Recovered/Resolved]
  - Rash [Recovered/Resolved]
  - Dyspnoea [Recovered/Resolved]
  - Hypoaesthesia [Recovering/Resolving]
  - Tachypnoea [Recovered/Resolved]
  - Electrocardiogram QT prolonged [None]
  - QRS axis abnormal [None]
  - Electrocardiogram ST segment abnormal [None]
  - Hypocalcaemia [None]

NARRATIVE: CASE EVENT DATE: 20240926
